FAERS Safety Report 25585428 (Version 1)
Quarter: 2025Q3

REPORT INFORMATION
  Report Type: Spontaneous
  Country: US (occurrence: None)
  Receive Date: 20250718
  Receipt Date: 20250718
  Transmission Date: 20251020
  Serious: Yes (Other)
  Sender: FDA-CTU
  Company Number: None

PATIENT
  Age: 74 Year
  Sex: Female
  Weight: 75 kg

DRUGS (3)
  1. KISUNLA [Suspect]
     Active Substance: DONANEMAB-AZBT
     Indication: Cognitive disorder
     Dosage: 700 MG MONTHLY INTRAVENUS DRIP
     Route: 041
     Dates: start: 20250717, end: 20250717
  2. Tylenol 650 mg po [Concomitant]
     Dates: start: 20250717, end: 20250717
  3. Methlyprednisolone  125 mg IV [Concomitant]
     Dates: start: 20250717, end: 20250717

REACTIONS (3)
  - Dyspnoea [None]
  - Erythema [None]
  - Infusion related reaction [None]

NARRATIVE: CASE EVENT DATE: 20250717
